FAERS Safety Report 13681272 (Version 1)
Quarter: 2017Q2

REPORT INFORMATION
  Report Type: Spontaneous
  Country: US (occurrence: US)
  Receive Date: 20170623
  Receipt Date: 20170623
  Transmission Date: 20170830
  Serious: No
  Sender: FDA-Public Use
  Company Number: US-PFIZER INC-2017271751

PATIENT
  Sex: Female

DRUGS (1)
  1. XELJANZ XR [Suspect]
     Active Substance: TOFACITINIB CITRATE
     Dosage: 11 MG, DAILY

REACTIONS (15)
  - Tenderness [Unknown]
  - Synovitis [Recovering/Resolving]
  - Vitamin D deficiency [Unknown]
  - Bronchitis [Unknown]
  - Dyspnoea [Not Recovered/Not Resolved]
  - Musculoskeletal stiffness [Unknown]
  - Osteopenia [Unknown]
  - Tooth infection [Unknown]
  - Chills [Unknown]
  - Cough [Unknown]
  - Aptyalism [Unknown]
  - Overweight [Unknown]
  - Gait disturbance [Unknown]
  - Joint range of motion decreased [Unknown]
  - Oropharyngeal pain [Unknown]
